FAERS Safety Report 25905429 (Version 1)
Quarter: 2025Q4

REPORT INFORMATION
  Report Type: Report from Study
  Country: EU (occurrence: EU)
  Receive Date: 20251010
  Receipt Date: 20251010
  Transmission Date: 20260118
  Serious: Yes (Other)
  Sender: AVERITAS
  Company Number: EU-GRUNENTHAL-2025-123443

PATIENT
  Age: 67 Year
  Sex: Female

DRUGS (1)
  1. QUTENZA [Suspect]
     Active Substance: CAPSAICIN
     Indication: Neuralgia
     Dosage: 1 DOSAGE FORM, ONCE
     Route: 003
     Dates: start: 20250917, end: 20250917

REACTIONS (5)
  - Application site pain [Recovered/Resolved]
  - Feeling hot [Recovered/Resolved]
  - Dizziness [Recovered/Resolved]
  - Hypertension [Recovered/Resolved]
  - Pain [Not Recovered/Not Resolved]

NARRATIVE: CASE EVENT DATE: 20250917
